FAERS Safety Report 20346118 (Version 1)
Quarter: 2022Q1

REPORT INFORMATION
  Report Type: Spontaneous
  Country: US (occurrence: None)
  Receive Date: 20220114
  Receipt Date: 20220114
  Transmission Date: 20220423
  Serious: Yes (Life-Threatening)
  Sender: FDA-Public Use
  Company Number: None

PATIENT
  Age: 18 Year
  Sex: Female
  Weight: 77 kg

DRUGS (1)
  1. BAMLANIVIMAB\ETESEVIMAB [Suspect]
     Active Substance: BAMLANIVIMAB\ETESEVIMAB
     Indication: SARS-CoV-2 test positive
     Dates: start: 20211227, end: 20211227

REACTIONS (7)
  - Anaphylactic reaction [None]
  - Lip swelling [None]
  - Exposure during pregnancy [None]
  - Dyspnoea [None]
  - Oxygen saturation decreased [None]
  - Foetal heart rate deceleration abnormality [None]
  - Infusion related reaction [None]

NARRATIVE: CASE EVENT DATE: 20211227
